FAERS Safety Report 8003492-4 (Version None)
Quarter: 2011Q4

REPORT INFORMATION
  Report Type: 
  Country: None (occurrence: None)
  Receive Date: 20111222
  Receipt Date: 20111219
  Transmission Date: 20120403
  Serious: Yes (Other)
  Sender: FDA-Public Use
  Company Number: US-PFIZER INC-2011308875

PATIENT
  Sex: Male

DRUGS (1)
  1. VIAGRA [Suspect]
     Dosage: 5-6 TABLETS
     Route: 048
     Dates: start: 20111219

REACTIONS (3)
  - ERECTION INCREASED [None]
  - ABDOMINAL DISCOMFORT [None]
  - ACCIDENTAL EXPOSURE [None]
